FAERS Safety Report 10421148 (Version 2)
Quarter: 2014Q3

REPORT INFORMATION
  Report Type: Spontaneous
  Country: IN (occurrence: IN)
  Receive Date: 20140830
  Receipt Date: 20140830
  Transmission Date: 20150326
  Serious: Yes (Other)
  Sender: FDA-Public Use
  Company Number: IN-AUROBINDO-AUR-APL-2014-08894

PATIENT
  Age: 27 Year
  Sex: Female

DRUGS (1)
  1. DIVALPROEX [Suspect]
     Active Substance: DIVALPROEX SODIUM
     Indication: JUVENILE MYOCLONIC EPILEPSY
     Dosage: 30 MG/KG
     Route: 065

REACTIONS (3)
  - Hemiparesis [Recovered/Resolved]
  - Demyelination [Recovered/Resolved]
  - Central nervous system lesion [Recovered/Resolved]
